FAERS Safety Report 11661001 (Version 1)
Quarter: 2015Q4

REPORT INFORMATION
  Report Type: Spontaneous
  Country: IT (occurrence: IT)
  Receive Date: 20151026
  Receipt Date: 20151026
  Transmission Date: 20160304
  Serious: Yes (Other)
  Sender: FDA-Public Use
  Company Number: IT-ELI_LILLY_AND_COMPANY-IT201510005451

PATIENT
  Age: 69 Year
  Sex: Male

DRUGS (2)
  1. HUMALOG [Suspect]
     Active Substance: INSULIN LISPRO
     Dosage: 18 IU, EACH EVENING
     Route: 058
     Dates: start: 20150101, end: 20150820
  2. HUMALOG [Suspect]
     Active Substance: INSULIN LISPRO
     Indication: TYPE 2 DIABETES MELLITUS
     Dosage: 13 IU, EACH MORNING
     Route: 058
     Dates: start: 20150101, end: 20150820

REACTIONS (4)
  - Loss of consciousness [Unknown]
  - Hypoglycaemia [Unknown]
  - Head injury [Unknown]
  - Face injury [Unknown]

NARRATIVE: CASE EVENT DATE: 20150820
